FAERS Safety Report 6833651-5 (Version None)
Quarter: 2010Q3

REPORT INFORMATION
  Report Type: 
  Country: None (occurrence: None)
  Receive Date: 20100712
  Receipt Date: 20070329
  Transmission Date: 20110219
  Serious: No
  Sender: FDA-Public Use
  Company Number: US-PFIZER INC-2007026543

PATIENT
  Sex: Female
  Weight: 81.65 kg

DRUGS (3)
  1. CHANTIX [Suspect]
     Indication: SMOKING CESSATION THERAPY
     Dates: start: 20070303
  2. ACETYLSALICYLIC ACID [Concomitant]
  3. CADUET [Concomitant]

REACTIONS (1)
  - FLATULENCE [None]
